FAERS Safety Report 16963153 (Version 1)
Quarter: 2019Q4

REPORT INFORMATION
  Report Type: Spontaneous
  Country: FR (occurrence: FR)
  Receive Date: 20191025
  Receipt Date: 20191025
  Transmission Date: 20200122
  Serious: Yes (Other)
  Sender: FDA-Public Use
  Company Number: FR-MYLANLABS-2019M1100333

PATIENT
  Age: 44 Year
  Sex: Male

DRUGS (2)
  1. TAMSULOSIN MYLAN [Suspect]
     Active Substance: TAMSULOSIN
     Indication: MICTURITION DISORDER
     Dosage: 0.4 MILLIGRAM, PM (IN THE EVENING)
  2. FOSFOMYCIN [Concomitant]
     Active Substance: FOSFOMYCIN
     Indication: PROPHYLAXIS URINARY TRACT INFECTION
     Dosage: ONE BAG

REACTIONS (2)
  - Product use in unapproved indication [Unknown]
  - Retrograde ejaculation [Unknown]
